FAERS Safety Report 11269484 (Version 2)
Quarter: 2015Q4

REPORT INFORMATION
  Report Type: Spontaneous
  Country: US (occurrence: US)
  Receive Date: 20150714
  Receipt Date: 20151104
  Transmission Date: 20160304
  Serious: Yes (Other)
  Sender: FDA-Public Use
  Company Number: US-ROCHE-1607651

PATIENT
  Sex: Male
  Weight: 92.16 kg

DRUGS (4)
  1. SILDENAFIL. [Concomitant]
     Active Substance: SILDENAFIL
     Indication: PULMONARY HYPERTENSION
     Route: 048
     Dates: start: 2013
  2. OXYGEN. [Concomitant]
     Active Substance: OXYGEN
     Indication: HYPOXIA
     Dosage: 2 L/MIN INHALED WITH ACTIVITY
     Route: 065
     Dates: start: 2005
  3. ALBUTEROL. [Concomitant]
     Active Substance: ALBUTEROL
     Indication: RESTRICTIVE PULMONARY DISEASE
     Dosage: INHALED 2 PUFFS AS REQUIRED
     Route: 065
  4. ESBRIET [Suspect]
     Active Substance: PIRFENIDONE
     Indication: IDIOPATHIC PULMONARY FIBROSIS
     Dosage: 3 PILLS THRICE DAILY
     Route: 048
     Dates: start: 20150202, end: 201507

REACTIONS (5)
  - Dizziness [Unknown]
  - Flushing [Recovered/Resolved]
  - Syncope [Unknown]
  - Diarrhoea [Recovered/Resolved]
  - Headache [Recovered/Resolved]
